FAERS Safety Report 23196391 (Version 2)
Quarter: 2024Q1

REPORT INFORMATION
  Report Type: Report from Study
  Country: US (occurrence: US)
  Receive Date: 20231117
  Receipt Date: 20240305
  Transmission Date: 20240410
  Serious: Yes (Other)
  Sender: FDA-Public Use
  Company Number: US-ABBVIE-5493410

PATIENT
  Age: 51 Year
  Sex: Female

DRUGS (3)
  1. HUMIRA [Suspect]
     Active Substance: ADALIMUMAB
     Indication: Hidradenitis
     Route: 058
     Dates: start: 20210315, end: 20231228
  2. HUMIRA [Suspect]
     Active Substance: ADALIMUMAB
     Route: 058
  3. IODOSORB [Concomitant]
     Active Substance: CADEXOMER IODINE
     Indication: Wound drainage
     Dates: start: 20230914

REACTIONS (7)
  - Nerve injury [Unknown]
  - Wound secretion [Unknown]
  - Impaired healing [Not Recovered/Not Resolved]
  - Neuroma [Recovering/Resolving]
  - Collagen disorder [Unknown]
  - Hidradenitis [Unknown]
  - Foot deformity [Unknown]

NARRATIVE: CASE EVENT DATE: 20230822
